APPROVED DRUG PRODUCT: MEDROXYPROGESTERONE ACETATE
Active Ingredient: MEDROXYPROGESTERONE ACETATE
Strength: 150MG/ML
Dosage Form/Route: INJECTABLE;INJECTION
Application: A078711 | Product #001
Applicant: SANDOZ INC
Approved: May 20, 2009 | RLD: No | RS: No | Type: DISCN